FAERS Safety Report 5700392-7 (Version None)
Quarter: 2008Q2

REPORT INFORMATION
  Report Type: 
  Country: None (occurrence: None)
  Receive Date: 20080410
  Receipt Date: 20080401
  Transmission Date: 20081010
  Serious: Yes (Disabling, Other)
  Sender: FDA-Public Use
  Company Number: IE-PFIZER INC-2008020844

PATIENT
  Sex: Male
  Weight: 168 kg

DRUGS (1)
  1. ISTIN [Suspect]
     Indication: CARDIAC MURMUR
     Route: 048

REACTIONS (2)
  - FATIGUE [None]
  - OCULAR ICTERUS [None]
